FAERS Safety Report 5372589-X (Version None)
Quarter: 2007Q2

REPORT INFORMATION
  Report Type: 
  Country: None (occurrence: None)
  Receive Date: 20070618
  Receipt Date: 20060815
  Transmission Date: 20071010
  Serious: Yes (Hospitalization)
  Sender: FDA-Public Use
  Company Number: 2006-04521

PATIENT
  Age: 73 Year
  Sex: Male
  Weight: 87 kg

DRUGS (1)
  1. INFED [Suspect]
     Indication: IRON DEFICIENCY ANAEMIA
     Dosage: 25 MG, TEST DOSE -NOT COMPLETED, INTRAVENOUS
     Route: 042
     Dates: start: 20060814, end: 20060814

REACTIONS (5)
  - ANAPHYLACTOID REACTION [None]
  - HYPOTENSION [None]
  - HYPOXIA [None]
  - LOSS OF CONSCIOUSNESS [None]
  - PRURITUS [None]
